FAERS Safety Report 8538238 (Version 4)
Quarter: 2013Q3

REPORT INFORMATION
  Report Type: Report from Study
  Country: MX (occurrence: MX)
  Receive Date: 20120501
  Receipt Date: 20130927
  Transmission Date: 20140515
  Serious: Yes (Hospitalization)
  Sender: FDA-Public Use
  Company Number: MX-PFIZER INC-2012100132

PATIENT
  Age: 54 Year
  Sex: Female
  Weight: 70 kg

DRUGS (2)
  1. PREGABALIN [Suspect]
     Indication: NEURALGIA
     Dosage: 300 MG, 2X/DAY
     Dates: start: 20120305
  2. ACETAMINOPHEN [Concomitant]
     Indication: PAIN
     Dosage: UNK
     Route: 048
     Dates: start: 20120305

REACTIONS (2)
  - Foot fracture [Recovering/Resolving]
  - Fall [Recovering/Resolving]
